FAERS Safety Report 8521623-4 (Version None)
Quarter: 2012Q3

REPORT INFORMATION
  Report Type: 
  Country: None (occurrence: None)
  Receive Date: 20120719
  Receipt Date: 20120716
  Transmission Date: 20120928
  Serious: Yes (Death, Hospitalization)
  Sender: FDA-Public Use
  Company Number: PHHY2012MX061350

PATIENT
  Sex: Female

DRUGS (3)
  1. ZOLEDRONOC ACID [Suspect]
     Indication: OSTEOPOROSIS
     Dosage: 5 MG, YEARLY
     Route: 042
     Dates: start: 20090801
  2. VITAMIN A [Concomitant]
     Dosage: UNK UKN, UNK
     Dates: start: 20110201
  3. ACETAMINOPHEN [Concomitant]
     Indication: ARTHRALGIA
     Dosage: 3 DF, DAILY
     Dates: start: 20100101

REACTIONS (3)
  - ABDOMINAL ADHESIONS [None]
  - DEATH [None]
  - CONSTIPATION [None]
